FAERS Safety Report 4650063-3 (Version None)
Quarter: 2005Q2

REPORT INFORMATION
  Report Type: 
  Country: None (occurrence: None)
  Receive Date: 20050428
  Receipt Date: 20050415
  Transmission Date: 20051028
  Serious: Yes (Other)
  Sender: FDA-Public Use
  Company Number: HQWYE081318APR05

PATIENT
  Age: 60 Year
  Sex: Male

DRUGS (4)
  1. CORDARONE [Suspect]
     Indication: ARRHYTHMIA
     Dosage: 0.2 G 1X PER 1 DAY, ORAL
     Route: 048
  2. FUROSEMIDE [Concomitant]
  3. BENDROFLUAZIDE (BENDROFLUMETHIAZIDE) [Concomitant]
  4. CAPTOPRIL [Concomitant]

REACTIONS (1)
  - PLEURAL EFFUSION [None]
